FAERS Safety Report 5978652-4 (Version None)
Quarter: 2008Q4

REPORT INFORMATION
  Report Type: 
  Country: None (occurrence: None)
  Receive Date: 20081202
  Receipt Date: 20081121
  Transmission Date: 20090506
  Serious: Yes (Hospitalization)
  Sender: FDA-Public Use
  Company Number: 231805K08USA

PATIENT
  Age: 61 Year
  Sex: Female
  Weight: 104 kg

DRUGS (8)
  1. REBIF [Suspect]
     Indication: MULTIPLE SCLEROSIS
     Dosage: 44 MCG, 3 IN 1 WEEKS, SUBCUTANEOUS
     Route: 058
     Dates: start: 20070521
  2. SOLU-MEDROL [Suspect]
     Indication: MULTIPLE SCLEROSIS RELAPSE
     Dosage: 1000 MG, INTRAVENOUS
     Route: 042
     Dates: start: 20080916, end: 20080919
  3. HYZAAR [Concomitant]
  4. PROTONIX [Concomitant]
  5. NITROFURANTOIN [Concomitant]
  6. RESTORIL [Concomitant]
  7. XANAX [Concomitant]
  8. BACLOFEN [Concomitant]

REACTIONS (8)
  - ABASIA [None]
  - ALOPECIA [None]
  - DIABETES MELLITUS [None]
  - FALL [None]
  - FATIGUE [None]
  - HYPOTHYROIDISM [None]
  - MULTIPLE SCLEROSIS RELAPSE [None]
  - MUSCULAR WEAKNESS [None]
